FAERS Safety Report 11632084 (Version 2)
Quarter: 2015Q4

REPORT INFORMATION
  Report Type: Spontaneous
  Country: GB (occurrence: GB)
  Receive Date: 20151015
  Receipt Date: 20151204
  Transmission Date: 20160304
  Serious: Yes (Hospitalization)
  Sender: FDA-Public Use
  Company Number: GB-TEVA-599269ACC

PATIENT
  Age: 35 Year
  Sex: Male
  Weight: 81.3 kg

DRUGS (9)
  1. ATORVASTATIN [Interacting]
     Active Substance: ATORVASTATIN
  2. FLUOXETINE [Interacting]
     Active Substance: FLUOXETINE HYDROCHLORIDE
  3. BISOPROLOL [Suspect]
     Active Substance: BISOPROLOL
  4. LISINOPRIL. [Interacting]
     Active Substance: LISINOPRIL
  5. PREGABALIN. [Interacting]
     Active Substance: PREGABALIN
  6. NEFOPAM [Interacting]
     Active Substance: NEFOPAM
     Indication: POSTOPERATIVE ANALGESIA
     Route: 048
     Dates: start: 20150716, end: 20150718
  7. DOCUSATE SODIUM. [Interacting]
     Active Substance: DOCUSATE SODIUM
  8. WARFARIN [Interacting]
     Active Substance: WARFARIN
  9. BENDROFLUMETHIAZIDE [Interacting]
     Active Substance: BENDROFLUMETHIAZIDE

REACTIONS (4)
  - Drug interaction [Recovered/Resolved]
  - Agitation [Recovered/Resolved]
  - Obsessive-compulsive disorder [Unknown]
  - Suicidal ideation [Recovered/Resolved]

NARRATIVE: CASE EVENT DATE: 20150716
